FAERS Safety Report 9988348 (Version 84)
Quarter: 2023Q4

REPORT INFORMATION
  Report Type: Other
  Country: CA (occurrence: None)
  Receive Date: 20140310
  Receipt Date: 20231212
  Transmission Date: 20240109
  Serious: Yes (Hospitalization, Other)
  Sender: FDA-Public Use
  Company Number: CA-ROCHE-1113555

PATIENT
  Age: 35 Year
  Sex: Female
  Weight: 97 kg

DRUGS (37)
  1. ACTEMRA [Suspect]
     Active Substance: TOCILIZUMAB
     Indication: Rheumatoid arthritis
     Route: 042
     Dates: start: 20110609, end: 20140227
  2. ACTEMRA [Suspect]
     Active Substance: TOCILIZUMAB
     Route: 042
     Dates: start: 20140327, end: 20140327
  3. ACTEMRA [Suspect]
     Active Substance: TOCILIZUMAB
     Route: 042
     Dates: start: 20140424, end: 20140424
  4. ACTEMRA [Suspect]
     Active Substance: TOCILIZUMAB
     Route: 042
     Dates: start: 20140522, end: 20140522
  5. ACTEMRA [Suspect]
     Active Substance: TOCILIZUMAB
     Route: 042
     Dates: start: 20140619, end: 20140619
  6. ACTEMRA [Suspect]
     Active Substance: TOCILIZUMAB
     Route: 042
     Dates: start: 20140814, end: 20200917
  7. ACTEMRA [Suspect]
     Active Substance: TOCILIZUMAB
     Dosage: INFUSION #79
     Route: 042
     Dates: start: 20170921
  8. ACTEMRA [Suspect]
     Active Substance: TOCILIZUMAB
     Dosage: INFUSION #85
     Route: 042
     Dates: start: 20180313
  9. ACTEMRA [Suspect]
     Active Substance: TOCILIZUMAB
     Dosage: INFUSION #85
     Route: 042
     Dates: start: 20180410
  10. ACTEMRA [Suspect]
     Active Substance: TOCILIZUMAB
     Route: 042
     Dates: start: 20220623, end: 20230427
  11. ACTEMRA [Suspect]
     Active Substance: TOCILIZUMAB
     Route: 042
     Dates: start: 20230525
  12. SEROPHENE [Suspect]
     Active Substance: CLOMIPHENE CITRATE
     Indication: Product used for unknown indication
     Route: 065
  13. METHYLDOPA [Suspect]
     Active Substance: METHYLDOPA
     Indication: Hypertension
     Route: 065
     Dates: start: 201202
  14. RITUXIMAB [Suspect]
     Active Substance: RITUXIMAB
     Indication: Product used for unknown indication
     Dosage: BATCH/LOT NOT PROVIDED AS NOT RECEIVED THROUGH RPAP.
     Route: 042
     Dates: start: 20210420, end: 20211230
  15. CYCLOBENZAPRINE [Concomitant]
     Active Substance: CYCLOBENZAPRINE
     Indication: Product used for unknown indication
  16. RAMIPRIL [Concomitant]
     Active Substance: RAMIPRIL
     Route: 042
     Dates: start: 20210420, end: 20211230
  17. FOLIC ACID [Concomitant]
     Active Substance: FOLIC ACID
     Indication: Product used for unknown indication
  18. PANTOPRAZOLE [Concomitant]
     Active Substance: PANTOPRAZOLE
     Indication: Product used for unknown indication
  19. SULFASALAZINE [Concomitant]
     Active Substance: SULFASALAZINE
     Indication: Product used for unknown indication
  20. ACTONEL [Concomitant]
     Active Substance: RISEDRONATE SODIUM
     Indication: Product used for unknown indication
  21. SYMBICORT [Concomitant]
     Active Substance: BUDESONIDE\FORMOTEROL FUMARATE DIHYDRATE
     Indication: Product used for unknown indication
  22. BRICANYL [Concomitant]
     Active Substance: TERBUTALINE SULFATE
     Indication: Product used for unknown indication
  23. PROVERA [Concomitant]
     Active Substance: MEDROXYPROGESTERONE ACETATE
     Indication: Product used for unknown indication
  24. CYKLOKAPRON [Concomitant]
     Active Substance: TRANEXAMIC ACID
     Indication: Product used for unknown indication
  25. TRIAZIDE [HYDROCHLOROTHIAZIDE;TRIAMTERENE] [Concomitant]
     Indication: Product used for unknown indication
  26. CORTISONE [Concomitant]
     Active Substance: CORTISONE
     Indication: Arthralgia
     Route: 058
  27. CORTISONE [Concomitant]
     Active Substance: CORTISONE
     Dosage: DECREASE DOSE
     Dates: start: 20120227
  28. PROMETRIUM [Concomitant]
     Active Substance: PROGESTERONE
  29. PREDNISONE [Concomitant]
     Active Substance: PREDNISONE
     Route: 065
  30. CLOMID [Concomitant]
     Active Substance: CLOMIPHENE CITRATE
  31. CALCIUM [Concomitant]
     Active Substance: CALCIUM
     Indication: Product used for unknown indication
  32. CLINDAMYCIN [Concomitant]
     Active Substance: CLINDAMYCIN
     Indication: Product used for unknown indication
  33. TRAMADOL HYDROCHLORIDE [Concomitant]
     Active Substance: TRAMADOL HYDROCHLORIDE
     Indication: Product used for unknown indication
  34. VOLTAREN [Concomitant]
     Active Substance: DICLOFENAC SODIUM
     Indication: Product used for unknown indication
  35. NAPROXEN [Concomitant]
     Active Substance: NAPROXEN
     Indication: Product used for unknown indication
     Route: 048
  36. PREDNISONE [Concomitant]
     Active Substance: PREDNISONE
  37. METHOTREXATE [Concomitant]
     Active Substance: METHOTREXATE

REACTIONS (67)
  - Diverticulitis [Recovered/Resolved]
  - Diverticulitis [Recovered/Resolved]
  - Nerve injury [Not Recovered/Not Resolved]
  - Adnexal torsion [Unknown]
  - Ovarian cyst [Not Recovered/Not Resolved]
  - Weight decreased [Unknown]
  - Blood iron decreased [Not Recovered/Not Resolved]
  - Muscle spasms [Unknown]
  - Arthralgia [Not Recovered/Not Resolved]
  - Contusion [Not Recovered/Not Resolved]
  - Amenorrhoea [Not Recovered/Not Resolved]
  - Weight increased [Unknown]
  - Nasopharyngitis [Recovered/Resolved]
  - Pain in extremity [Unknown]
  - Hypotension [Unknown]
  - Dizziness [Unknown]
  - Oedema peripheral [Not Recovered/Not Resolved]
  - Joint range of motion decreased [Unknown]
  - Hypoaesthesia [Not Recovered/Not Resolved]
  - Swelling [Not Recovered/Not Resolved]
  - Nodule [Not Recovered/Not Resolved]
  - Musculoskeletal stiffness [Unknown]
  - Insomnia [Not Recovered/Not Resolved]
  - Urticaria [Recovering/Resolving]
  - Infusion related reaction [Recovering/Resolving]
  - Infertility [Not Recovered/Not Resolved]
  - Fatigue [Not Recovered/Not Resolved]
  - Neck pain [Not Recovered/Not Resolved]
  - Uterine disorder [Not Recovered/Not Resolved]
  - Fallopian tube disorder [Not Recovered/Not Resolved]
  - Weight loss poor [Unknown]
  - Muscle spasms [Unknown]
  - Peripheral swelling [Unknown]
  - Deformity [Unknown]
  - Fine motor skill dysfunction [Unknown]
  - Foot deformity [Unknown]
  - Rheumatoid arthritis [Unknown]
  - Blood pressure fluctuation [Unknown]
  - Joint noise [Unknown]
  - Blood pressure increased [Unknown]
  - Arthralgia [Not Recovered/Not Resolved]
  - Blood pressure diastolic increased [Unknown]
  - Blood pressure fluctuation [Unknown]
  - Nasal congestion [Recovered/Resolved]
  - Cough [Recovered/Resolved]
  - Headache [Not Recovered/Not Resolved]
  - Chills [Unknown]
  - Pyrexia [Unknown]
  - Lower respiratory tract congestion [Unknown]
  - Arthralgia [Not Recovered/Not Resolved]
  - Rheumatoid nodule [Not Recovered/Not Resolved]
  - Onychomycosis [Unknown]
  - Disability assessment scale score increased [Unknown]
  - Rash erythematous [Unknown]
  - Joint stiffness [Unknown]
  - Nail infection [Not Recovered/Not Resolved]
  - Joint ankylosis [Not Recovered/Not Resolved]
  - Heart rate increased [Unknown]
  - Oxygen saturation decreased [Not Recovered/Not Resolved]
  - Gait disturbance [Not Recovered/Not Resolved]
  - Onychoclasis [Recovered/Resolved]
  - Onychoclasis [Not Recovered/Not Resolved]
  - Blood pressure diastolic abnormal [Unknown]
  - Nausea [Unknown]
  - Vomiting [Unknown]
  - Angioedema [Unknown]
  - Anaphylactic reaction [Unknown]

NARRATIVE: CASE EVENT DATE: 20120221
